FAERS Safety Report 25956499 (Version 1)
Quarter: 2025Q4

REPORT INFORMATION
  Report Type: Spontaneous
  Country: US (occurrence: None)
  Receive Date: 20251023
  Receipt Date: 20251023
  Transmission Date: 20260118
  Serious: No
  Sender: FDA-CTU
  Company Number: None

PATIENT
  Age: 67 Year
  Sex: Female
  Weight: 60.75 kg

DRUGS (11)
  1. LISDEXAMFETAMINE DIMESYLATE [Suspect]
     Active Substance: LISDEXAMFETAMINE DIMESYLATE
     Indication: Post-acute COVID-19 syndrome
     Dosage: OTHER QUANTITY : 1 TABLET(S);?
     Route: 048
     Dates: start: 20251014, end: 20251023
  2. Femring 0.1 mg q 3 mo [Concomitant]
  3. Armour Thyroid 90mg qd [Concomitant]
  4. Micronized progesterone 300mg qd [Concomitant]
  5. Seed DS-01 [Concomitant]
  6. probiotic Seed [Concomitant]
  7. DM-02 multivitamin [Concomitant]
  8. Ashwaganda Curcumin Vit D3 [Concomitant]
  9. Vit K2 [Concomitant]
  10. MAGNESIUM GLYCINATE [Concomitant]
     Active Substance: MAGNESIUM GLYCINATE
  11. MELATONIN [Concomitant]
     Active Substance: MELATONIN

REACTIONS (6)
  - Anxiety [None]
  - Palpitations [None]
  - Irritability [None]
  - Depressed mood [None]
  - Feeling of despair [None]
  - Tremor [None]

NARRATIVE: CASE EVENT DATE: 20251014
